FAERS Safety Report 25779493 (Version 1)
Quarter: 2025Q3

REPORT INFORMATION
  Report Type: Report from Study
  Country: US (occurrence: US)
  Receive Date: 20250909
  Receipt Date: 20250909
  Transmission Date: 20251020
  Serious: Yes (Other)
  Sender: ALEXION PHARMACEUTICALS
  Company Number: US-AstraZeneca-CH-00939423A

PATIENT
  Sex: Female

DRUGS (10)
  1. DAPAGLIFLOZIN [Suspect]
     Active Substance: DAPAGLIFLOZIN
     Dosage: 10 MILLIGRAM, QD
  2. METHYLCOBALAMIN [Concomitant]
     Active Substance: METHYLCOBALAMIN
  3. ENTRESTO [Concomitant]
     Active Substance: SACUBITRIL\VALSARTAN
     Dosage: 26 MILLIGRAM, BID
     Dates: start: 20250226
  4. ZINC GLUCONATE [Concomitant]
     Active Substance: ZINC GLUCONATE
     Dosage: 50 MILLIGRAM, QD
     Dates: start: 20220709
  5. MENAQUINONE 6 [Concomitant]
     Active Substance: MENAQUINONE 6
     Dosage: 100 MICROGRAM, QD
     Dates: start: 20250709
  6. VITAMIN D3 [Concomitant]
     Active Substance: CHOLECALCIFEROL
     Dosage: 10 MICROGRAM, QD
     Dates: start: 20250709
  7. VITAMIN C [Concomitant]
     Active Substance: ASCORBIC ACID
     Dosage: 1000 MILLIGRAM, QD
     Dates: start: 20250709
  8. VITAMINS [Concomitant]
     Active Substance: VITAMINS
  9. CARVEDILOL [Concomitant]
     Active Substance: CARVEDILOL
     Dosage: 6.25 MILLIGRAM, BID
     Dates: start: 20250710
  10. ALDACTONE [Concomitant]
     Active Substance: SPIRONOLACTONE

REACTIONS (9)
  - Rotator cuff syndrome [Unknown]
  - Product dose omission issue [Unknown]
  - Snoring [Unknown]
  - Obesity [Unknown]
  - Cardiomyopathy [Unknown]
  - Dyspnoea [Unknown]
  - Cardiac failure [Unknown]
  - Pruritus [Unknown]
  - Insurance issue [Unknown]
